FAERS Safety Report 4931367-3 (Version None)
Quarter: 2006Q1

REPORT INFORMATION
  Report Type: 
  Country: None (occurrence: None)
  Receive Date: 20060303
  Receipt Date: 20060220
  Transmission Date: 20060701
  Serious: Yes (Disabling)
  Sender: FDA-Public Use
  Company Number: PHBS2006DK02999

PATIENT
  Age: 78 Year
  Sex: Female

DRUGS (7)
  1. ZOMETA [Suspect]
     Dosage: 4 MG ONCE EVERY MONTH
     Dates: start: 20031110, end: 20051214
  2. AREDIA [Suspect]
     Dosage: 90 MG, QMO
     Dates: start: 20020504, end: 20030106
  3. MAGNYL [Concomitant]
  4. TRIATEC [Concomitant]
  5. METOZOC [Concomitant]
  6. NOBLIGAN [Concomitant]
  7. ACETAMINOPHEN [Concomitant]

REACTIONS (1)
  - OSTEONECROSIS [None]
